FAERS Safety Report 8593412-6 (Version None)
Quarter: 2012Q3

REPORT INFORMATION
  Report Type: 
  Country: None (occurrence: None)
  Receive Date: 20120814
  Receipt Date: 20120807
  Transmission Date: 20120928
  Serious: Yes (Other)
  Sender: FDA-Public Use
  Company Number: JP-VERTEX PHARMACEUTICALS INC.-AE-2012-011967

PATIENT
  Age: 46 Year
  Sex: Male

DRUGS (14)
  1. RIBAVIRIN [Concomitant]
     Route: 048
     Dates: start: 20120516, end: 20120703
  2. PEGINTERFERON ALFA-2B [Concomitant]
     Indication: HEPATITIS C
     Route: 058
     Dates: start: 20120425
  3. PRIMPERAN TAB [Concomitant]
     Route: 048
     Dates: start: 20120428
  4. TELAVIC (TELAPREVIR) [Suspect]
     Indication: HEPATITIS C
     Route: 048
     Dates: start: 20120425, end: 20120718
  5. RIBAVIRIN [Concomitant]
     Indication: HEPATITIS C
     Route: 048
     Dates: start: 20120425, end: 20120507
  6. RIBAVIRIN [Concomitant]
     Route: 048
     Dates: start: 20120704
  7. PEGINTERFERON ALFA-2B [Concomitant]
     Route: 058
     Dates: end: 20120620
  8. ZOLPIDEM [Concomitant]
     Route: 048
     Dates: start: 20120503
  9. RIBAVIRIN [Concomitant]
     Route: 048
     Dates: start: 20120508, end: 20120515
  10. PEGINTERFERON ALFA-2B [Concomitant]
     Route: 058
     Dates: start: 20120718
  11. ANTEBATE [Concomitant]
     Route: 061
     Dates: start: 20120430, end: 20120509
  12. GASMOTIN [Concomitant]
     Route: 048
     Dates: start: 20120425, end: 20120518
  13. PEGINTERFERON ALFA-2B [Concomitant]
     Dates: start: 20120704, end: 20120704
  14. PEGINTERFERON ALFA-2B [Concomitant]
     Route: 058
     Dates: start: 20120711, end: 20120711

REACTIONS (1)
  - NEUTROPHIL COUNT DECREASED [None]
